FAERS Safety Report 24446871 (Version 1)
Quarter: 2024Q4

REPORT INFORMATION
  Report Type: Report from Study
  Country: CA (occurrence: CA)
  Receive Date: 20241016
  Receipt Date: 20241016
  Transmission Date: 20250114
  Serious: Yes (Other)
  Sender: SAMSUNG BIOEPIS
  Company Number: CA-SAMSUNG BIOEPIS-SB-2024-30680

PATIENT
  Age: 80 Year
  Sex: Male

DRUGS (1)
  1. BYOOVIZ [Suspect]
     Active Substance: RANIBIZUMAB-NUNA
     Indication: Neovascular age-related macular degeneration
     Dosage: BYOOVIZ, 10 MG/ML VIAL, MONTHLY INTRAVITREAL INJECTIONS
     Route: 031
     Dates: start: 20240104

REACTIONS (1)
  - Subretinal fluid [Not Recovered/Not Resolved]
